FAERS Safety Report 4322991-X (Version None)
Quarter: 2004Q1

REPORT INFORMATION
  Report Type: 
  Country: None (occurrence: None)
  Receive Date: 20040325
  Receipt Date: 20000523
  Transmission Date: 20041129
  Serious: Yes (Death, Life-Threatening, Hospitalization)
  Sender: FDA-Public Use
  Company Number: 10394963

PATIENT
  Age: 56 Year
  Sex: Female

DRUGS (5)
  1. VIDEX [Suspect]
     Indication: HIV INFECTION
     Route: 048
     Dates: start: 20000131, end: 20000424
  2. LITALIR [Suspect]
     Route: 048
     Dates: start: 20000131, end: 20000424
  3. SUSTIVA [Suspect]
     Indication: HIV INFECTION
     Route: 048
     Dates: start: 20000131, end: 20000424
  4. ZERIT [Concomitant]
     Indication: HIV INFECTION
     Route: 048
     Dates: start: 19961101, end: 20000424
  5. LAMIVUDINE [Concomitant]

REACTIONS (4)
  - DISSEMINATED INTRAVASCULAR COAGULATION [None]
  - HEPATIC FAILURE [None]
  - HEPATITIS FULMINANT [None]
  - PANCREATITIS [None]
